FAERS Safety Report 21026798 (Version 2)
Quarter: 2023Q4

REPORT INFORMATION
  Report Type: Spontaneous
  Country: GB (occurrence: GB)
  Receive Date: 20220630
  Receipt Date: 20231117
  Transmission Date: 20240110
  Serious: Yes (Death, Hospitalization)
  Sender: FDA-Public Use
  Company Number: GB-TEVA-2022-GB-2049613

PATIENT
  Age: 71 Year
  Sex: Male

DRUGS (7)
  1. DEXAMETHASONE [Suspect]
     Active Substance: DEXAMETHASONE
     Indication: COVID-19 pneumonia
     Route: 065
  2. PREDNISOLONE [Suspect]
     Active Substance: PREDNISOLONE
     Indication: Rheumatoid arthritis
     Dosage: 2-5 MG
     Route: 048
  3. HYDROXYCHLOROQUINE [Suspect]
     Active Substance: HYDROXYCHLOROQUINE
     Indication: Rheumatoid arthritis
     Route: 065
  4. SULFASALAZINE [Suspect]
     Active Substance: SULFASALAZINE
     Indication: Rheumatoid arthritis
     Route: 065
  5. RITUXIMAB [Suspect]
     Active Substance: RITUXIMAB
     Indication: Rheumatoid arthritis
     Route: 050
  6. AMOXICILLIN\CLAVULANATE POTASSIUM [Suspect]
     Active Substance: AMOXICILLIN\CLAVULANATE POTASSIUM
     Indication: COVID-19 pneumonia
     Route: 042
  7. COVID-19 mRNA Vaccine [Concomitant]
     Indication: COVID-19 immunisation
     Dosage: HE RECEIVED TWO DOSES OF COVID-19 MRNA VACCINE (BIONTECH-PFIZER) ELEVEN WEEKS APART.
     Route: 065

REACTIONS (5)
  - COVID-19 pneumonia [Fatal]
  - Vaccination failure [Fatal]
  - Drug ineffective for unapproved indication [Fatal]
  - Off label use [Fatal]
  - Acute kidney injury [Unknown]
